FAERS Safety Report 8471688-3 (Version None)
Quarter: 2012Q2

REPORT INFORMATION
  Report Type: 
  Country: None (occurrence: None)
  Receive Date: 20120627
  Receipt Date: 20120620
  Transmission Date: 20120825
  Serious: Yes (Life-Threatening, Hospitalization, Other)
  Sender: FDA-Public Use
  Company Number: US-GLAXOSMITHKLINE-A0979392A

PATIENT
  Age: 55 Year
  Sex: Female

DRUGS (1)
  1. FLOLAN [Suspect]
     Indication: PULMONARY HYPERTENSION
     Dosage: 28.5NGKM CONTINUOUS
     Route: 042
     Dates: start: 20080320

REACTIONS (7)
  - FLUID OVERLOAD [None]
  - CARDIOGENIC SHOCK [None]
  - PAIN IN JAW [None]
  - COMA [None]
  - RIGHT VENTRICULAR FAILURE [None]
  - DYSPNOEA [None]
  - TACHYCARDIA [None]
